FAERS Safety Report 13153361 (Version 1)
Quarter: 2017Q1

REPORT INFORMATION
  Report Type: Spontaneous
  Country: US (occurrence: US)
  Receive Date: 20170125
  Receipt Date: 20170125
  Transmission Date: 20170428
  Serious: No
  Sender: FDA-Public Use
  Company Number: None

PATIENT
  Age: 74 Year
  Sex: Male
  Weight: 82.92 kg

DRUGS (3)
  1. DEXAMETHASONE. [Concomitant]
     Active Substance: DEXAMETHASONE
  2. CARFILZOMIB [Concomitant]
     Active Substance: CARFILZOMIB
  3. POMALIDOMIDE 1 MG CELGENE [Suspect]
     Active Substance: POMALIDOMIDE
     Indication: PLASMA CELL MYELOMA
     Dosage: 1 MG DAILY ON DAYS 1-21 ORAL
     Route: 048
     Dates: start: 20161109

REACTIONS (3)
  - Therapy non-responder [None]
  - Therapy change [None]
  - Rash [None]

NARRATIVE: CASE EVENT DATE: 20161111
